FAERS Safety Report 8363388-5 (Version None)
Quarter: 2012Q1

REPORT INFORMATION
  Report Type: 
  Country: None (occurrence: None)
  Receive Date: 20120323
  Receipt Date: 20110516
  Transmission Date: 20120608
  Serious: Yes (Hospitalization)
  Sender: FDA-Public Use
  Company Number: 163-21880-11052328

PATIENT
  Age: 72 Year
  Sex: Female
  Weight: 57.1532 kg

DRUGS (6)
  1. METFORMIN HCL [Concomitant]
  2. ATENOLOL [Concomitant]
  3. DECADRON [Concomitant]
  4. CAPTOPRIL [Concomitant]
  5. REVLIMID [Suspect]
     Indication: MULTIPLE MYELOMA
     Dosage: 25 MG, 1 IN 1 D, PO
     Route: 048
     Dates: start: 20110308
  6. GLIPIZIDE [Concomitant]

REACTIONS (3)
  - DIARRHOEA [None]
  - FATIGUE [None]
  - DEHYDRATION [None]
